FAERS Safety Report 9256916 (Version 2)
Quarter: 2014Q1

REPORT INFORMATION
  Report Type: Spontaneous
  Country: US (occurrence: US)
  Receive Date: 20130426
  Receipt Date: 20140116
  Transmission Date: 20141002
  Serious: No
  Sender: FDA-Public Use
  Company Number: US-ASTRAZENECA-2013SE27296

PATIENT
  Age: 35 Year
  Sex: Female

DRUGS (14)
  1. NEXIUM [Suspect]
     Indication: GASTROOESOPHAGEAL REFLUX DISEASE
     Route: 048
     Dates: start: 200506, end: 200708
  2. NEXIUM [Suspect]
     Indication: GASTROOESOPHAGEAL REFLUX DISEASE
     Route: 048
     Dates: start: 20050627
  3. ZANTAC [Concomitant]
     Dates: start: 2012
  4. TUMS [Concomitant]
  5. AMOXICILLINE [Concomitant]
  6. CLARITHROMYCIN [Concomitant]
  7. PERMETHRIN [Concomitant]
  8. TRAMADOL HCL [Concomitant]
  9. HYDROXYZ HCL [Concomitant]
  10. MACROBID [Concomitant]
     Dates: start: 20020216
  11. PHENERGAN [Concomitant]
     Dates: start: 20020408
  12. HYDROCODONE/APAP [Concomitant]
     Dosage: 10-650 MG
     Dates: start: 20030114
  13. FAMOTIDINE [Concomitant]
     Dates: start: 20031004
  14. CYCLOBENZAPRINE [Concomitant]
     Dates: start: 20040709

REACTIONS (3)
  - Osteoporosis [Unknown]
  - Bone disorder [Unknown]
  - Foot fracture [Unknown]
